FAERS Safety Report 8711053 (Version 6)
Quarter: 2013Q3

REPORT INFORMATION
  Report Type: Spontaneous
  Country: US (occurrence: US)
  Receive Date: 20120807
  Receipt Date: 20130927
  Transmission Date: 20140515
  Serious: Yes (Hospitalization, Disabling, Other)
  Sender: FDA-Public Use
  Company Number: US-009507513-1207USA012032

PATIENT
  Sex: Female

DRUGS (5)
  1. FOSAMAX [Suspect]
     Indication: OSTEOPOROSIS PROPHYLAXIS
     Dosage: 70 MG, QW
     Route: 048
     Dates: start: 2003, end: 200708
  2. FOSAMAX [Suspect]
     Indication: FAMILIAL RISK FACTOR
  3. FOSAMAX PLUS D [Suspect]
     Indication: OSTEOPOROSIS PROPHYLAXIS
     Dosage: 70 MG, QW
     Route: 048
     Dates: start: 20070830, end: 20090726
  4. FOSAMAX PLUS D [Suspect]
     Indication: FAMILIAL RISK FACTOR
  5. CELEBREX [Concomitant]
     Indication: ARTHRITIS
     Dosage: UNK
     Dates: start: 20050210

REACTIONS (62)
  - Open reduction of fracture [Unknown]
  - Anaemia postoperative [Unknown]
  - Urinary tract infection [Unknown]
  - Spinal operation [Unknown]
  - Device failure [Unknown]
  - Medical device change [Unknown]
  - Medical device removal [Unknown]
  - Spinal fusion surgery [Unknown]
  - Spinal fusion surgery [Unknown]
  - Medical device removal [Unknown]
  - Spinal operation [Unknown]
  - Spinal operation [Unknown]
  - Spinal fusion surgery [Unknown]
  - Osteotomy [Unknown]
  - Haemorrhagic anaemia [Unknown]
  - Surgery [Unknown]
  - Cholecystectomy [Unknown]
  - Femur fracture [Unknown]
  - Bone graft [Unknown]
  - Procedural haemorrhage [Unknown]
  - Transfusion [Unknown]
  - Breast cancer [Unknown]
  - Lumbar vertebral fracture [Unknown]
  - Spinal fusion surgery [Unknown]
  - Haemorrhagic anaemia [Unknown]
  - Wound infection staphylococcal [Unknown]
  - Wound treatment [Unknown]
  - Knee arthroplasty [Not Recovered/Not Resolved]
  - Hip arthroplasty [Not Recovered/Not Resolved]
  - Device breakage [Unknown]
  - Femur fracture [Recovered/Resolved]
  - Tooth extraction [Unknown]
  - Hypertension [Unknown]
  - Blood cholesterol increased [Unknown]
  - Adjustment disorder with depressed mood [Unknown]
  - Neck injury [Unknown]
  - Vitamin D deficiency [Unknown]
  - Neuralgia [Recovering/Resolving]
  - Neuralgia [Unknown]
  - Spinal disorder [Unknown]
  - Spinal osteoarthritis [Unknown]
  - Osteoarthritis [Unknown]
  - Medical device removal [Unknown]
  - Tendinous contracture [Unknown]
  - Tendon operation [Unknown]
  - Fracture delayed union [Recovered/Resolved]
  - Atelectasis [Unknown]
  - Cystopexy [Unknown]
  - Hysterectomy [Unknown]
  - Palpitations [Unknown]
  - Eye pain [Unknown]
  - Breast lump removal [Unknown]
  - Bladder prolapse [Unknown]
  - Dysuria [Unknown]
  - Escherichia urinary tract infection [Unknown]
  - Anxiety [Unknown]
  - Coronary artery disease [Unknown]
  - Neurogenic bladder [Unknown]
  - Insomnia [Unknown]
  - Pain in extremity [Unknown]
  - Gastrooesophageal reflux disease [Unknown]
  - Muscle spasms [Unknown]
